FAERS Safety Report 23098169 (Version 1)
Quarter: 2023Q4

REPORT INFORMATION
  Report Type: Spontaneous
  Country: US (occurrence: None)
  Receive Date: 20231020
  Receipt Date: 20231020
  Transmission Date: 20240109
  Serious: Yes (Hospitalization)
  Sender: FDA-Public Use
  Company Number: None

PATIENT
  Age: 97 Year
  Sex: Male

DRUGS (1)
  1. DONEPEZIL HYDROCHLORIDE [Suspect]
     Active Substance: DONEPEZIL HYDROCHLORIDE
     Dosage: FREQUENCY : DAILY;?
     Route: 048
     Dates: start: 20230222, end: 20230315

REACTIONS (5)
  - Dehydration [None]
  - Decreased appetite [None]
  - Dizziness [None]
  - Fall [None]
  - Hypernatraemia [None]

NARRATIVE: CASE EVENT DATE: 20230315
